FAERS Safety Report 23757105 (Version 9)
Quarter: 2025Q1

REPORT INFORMATION
  Report Type: Spontaneous
  Country: US (occurrence: US)
  Receive Date: 20240418
  Receipt Date: 20250205
  Transmission Date: 20250409
  Serious: No
  Sender: PFIZER
  Company Number: US-PFIZER INC-202400087486

PATIENT
  Age: 47 Year
  Sex: Female
  Weight: 84.807 kg

DRUGS (6)
  1. PREMARIN [Suspect]
     Active Substance: ESTROGENS, CONJUGATED
     Indication: Hormone replacement therapy
     Dosage: 0.9 MG, 1X/DAY
     Route: 048
     Dates: start: 2007
  2. PREMARIN [Suspect]
     Active Substance: ESTROGENS, CONJUGATED
     Dates: start: 2017
  3. PREMARIN [Suspect]
     Active Substance: ESTROGENS, CONJUGATED
  4. PREMARIN [Suspect]
     Active Substance: ESTROGENS, CONJUGATED
     Dosage: ONCE A DAY
  5. LOSARTAN [Concomitant]
     Active Substance: LOSARTAN
     Indication: Blood pressure abnormal
     Dosage: TWO TIMES A DAY
  6. METOPROLOL [Concomitant]
     Active Substance: METOPROLOL

REACTIONS (2)
  - Feeling abnormal [Unknown]
  - Nervousness [Unknown]
